FAERS Safety Report 4389412-2 (Version None)
Quarter: 2004Q2

REPORT INFORMATION
  Report Type: 
  Country: None (occurrence: None)
  Receive Date: 20040628
  Receipt Date: 20040618
  Transmission Date: 20050107
  Serious: Yes (Death)
  Sender: FDA-Public Use
  Company Number: US-JNJFOC-20040500559

PATIENT
  Age: 71 Year
  Sex: Male

DRUGS (3)
  1. DURAGESIC [Suspect]
     Indication: PAIN
     Dosage: SEE IMAGE
     Route: 062
     Dates: start: 20040401, end: 20040401
  2. DURAGESIC [Suspect]
     Indication: PAIN
     Dosage: SEE IMAGE
     Route: 062
     Dates: start: 20040401, end: 20040513
  3. HYDROCODONE BITARTRATE [Concomitant]

REACTIONS (4)
  - COLON CANCER [None]
  - INCOHERENT [None]
  - MEDICATION ERROR [None]
  - MEMORY IMPAIRMENT [None]
